FAERS Safety Report 10879784 (Version 2)
Quarter: 2015Q2

REPORT INFORMATION
  Report Type: Report from Study
  Country: US (occurrence: US)
  Receive Date: 20150302
  Receipt Date: 20150601
  Transmission Date: 20150821
  Serious: Yes (Other)
  Sender: FDA-Public Use
  Company Number: US-VERTEX PHARMACEUTICALS-2015-000631

PATIENT
  Age: 16 Year
  Sex: Male

DRUGS (1)
  1. KALYDECO [Suspect]
     Active Substance: IVACAFTOR
     Indication: CYSTIC FIBROSIS
     Dosage: UNK
     Route: 048
     Dates: start: 20120323

REACTIONS (7)
  - Hypoglycaemia [Not Recovered/Not Resolved]
  - Seasonal allergy [Unknown]
  - Pulmonary function test decreased [Recovering/Resolving]
  - Blood triglycerides increased [Not Recovered/Not Resolved]
  - Cystic fibrosis hepatic disease [Not Recovered/Not Resolved]
  - Headache [Recovering/Resolving]
  - Pseudomonas infection [Recovered/Resolved]

NARRATIVE: CASE EVENT DATE: 201403
